FAERS Safety Report 13481681 (Version 2)
Quarter: 2017Q3

REPORT INFORMATION
  Report Type: Report from Study
  Country: US (occurrence: US)
  Receive Date: 20170424
  Receipt Date: 20170728
  Transmission Date: 20171127
  Serious: No
  Sender: FDA-Public Use
  Company Number: US-AMGEN-USASL2017037079

PATIENT
  Age: 76 Year
  Sex: Female
  Weight: 78.5 kg

DRUGS (2)
  1. REPATHA [Suspect]
     Active Substance: EVOLOCUMAB
     Indication: HYPERCHOLESTEROLAEMIA
     Dosage: 420 MG, QMO
     Route: 058
     Dates: end: 201612
  2. REPATHA [Suspect]
     Active Substance: EVOLOCUMAB
     Dosage: 140 MG, Q2WK
     Route: 058

REACTIONS (4)
  - Poor quality sleep [Not Recovered/Not Resolved]
  - Injection site bruising [Unknown]
  - Application site rash [Recovered/Resolved]
  - Injection site pain [Unknown]
